FAERS Safety Report 13660940 (Version 1)
Quarter: 2017Q2

REPORT INFORMATION
  Report Type: Spontaneous
  Country: BR (occurrence: BR)
  Receive Date: 20170616
  Receipt Date: 20170616
  Transmission Date: 20170830
  Serious: Yes (Other)
  Sender: FDA-Public Use
  Company Number: BR-BIOMARINAP-BR-2017-114343

PATIENT
  Age: 46 Year
  Sex: Female
  Weight: 47 kg

DRUGS (1)
  1. ALDURAZYME [Suspect]
     Active Substance: LARONIDASE
     Indication: MUCOPOLYSACCHARIDOSIS I
     Dosage: UNK
     Route: 041
     Dates: start: 20091020

REACTIONS (7)
  - Cough [Unknown]
  - Rhinitis [Unknown]
  - Malaise [Unknown]
  - Influenza [Not Recovered/Not Resolved]
  - Pneumonia [Not Recovered/Not Resolved]
  - Pyrexia [Unknown]
  - Product use issue [Unknown]

NARRATIVE: CASE EVENT DATE: 20170602
